FAERS Safety Report 7509137-1 (Version None)
Quarter: 2011Q2

REPORT INFORMATION
  Report Type: 
  Country: None (occurrence: None)
  Receive Date: 20110527
  Receipt Date: 20110516
  Transmission Date: 20111010
  Serious: Yes (Life-Threatening, Hospitalization)
  Sender: FDA-Public Use
  Company Number: US-JNJFOC-20070400327

PATIENT
  Sex: Male
  Weight: 91 kg

DRUGS (20)
  1. ACETAMINOPHEN [Concomitant]
     Route: 048
     Dates: start: 20070222, end: 20070225
  2. CNTO 1275 [Suspect]
     Route: 058
     Dates: start: 20060921
  3. CNTO 1275 [Suspect]
     Route: 058
     Dates: start: 20060629
  4. AVODART [Concomitant]
     Route: 048
     Dates: start: 20061028
  5. LEVAQUIN [Concomitant]
     Route: 048
     Dates: start: 20070228, end: 20070306
  6. ZETIA [Concomitant]
     Route: 048
     Dates: start: 20070102
  7. LEVAQUIN [Concomitant]
     Route: 048
     Dates: start: 20070221, end: 20070227
  8. ZINACEF [Concomitant]
     Route: 042
     Dates: start: 20070221, end: 20070221
  9. PLAVIX [Concomitant]
     Route: 048
     Dates: start: 20050701
  10. BACTRIM DS [Concomitant]
     Route: 048
     Dates: start: 20061213
  11. CNTO 1275 [Suspect]
     Indication: PSORIASIS
     Route: 058
     Dates: start: 20061214
  12. COLACE [Concomitant]
     Route: 048
     Dates: start: 20070221
  13. ASPIRIN [Concomitant]
     Route: 048
     Dates: start: 20050701
  14. CNTO 1275 [Suspect]
     Route: 058
     Dates: start: 20060309
  15. LIPITOR [Concomitant]
     Route: 048
     Dates: start: 20050701
  16. ALBUTEROL SULFATE AUTOHALER [Concomitant]
     Route: 055
     Dates: start: 20070223, end: 20070227
  17. NUBAIN [Concomitant]
     Route: 042
     Dates: start: 20070221, end: 20070222
  18. CNTO 1275 [Suspect]
     Route: 058
     Dates: start: 20060411
  19. ATROVENT [Concomitant]
     Route: 055
     Dates: start: 20070223, end: 20070227
  20. METAPROLOL [Concomitant]
     Route: 048
     Dates: start: 20070223

REACTIONS (2)
  - ACUTE MYOCARDIAL INFARCTION [None]
  - TRANSITIONAL CELL CARCINOMA [None]
